FAERS Safety Report 8111484-X (Version None)
Quarter: 2012Q1

REPORT INFORMATION
  Report Type: 
  Country: None (occurrence: None)
  Receive Date: 20120203
  Receipt Date: 20120125
  Transmission Date: 20120608
  Serious: Yes (Other)
  Sender: FDA-Public Use
  Company Number: GB-BRISTOL-MYERS SQUIBB COMPANY-16336760

PATIENT
  Age: 58 Year
  Sex: Male
  Weight: 116 kg

DRUGS (1)
  1. ONGLYZA [Suspect]
     Route: 048

REACTIONS (1)
  - OBESITY [None]
